FAERS Safety Report 6713958-2 (Version None)
Quarter: 2010Q2

REPORT INFORMATION
  Report Type: 
  Country: None (occurrence: None)
  Receive Date: 20100506
  Receipt Date: 20100504
  Transmission Date: 20101027
  Serious: Yes (Hospitalization)
  Sender: FDA-Public Use
  Company Number: US-BRISTOL-MYERS SQUIBB COMPANY-15090806

PATIENT
  Age: 63 Year
  Sex: Male
  Weight: 60 kg

DRUGS (7)
  1. CETUXIMAB [Suspect]
     Indication: NON-SMALL CELL LUNG CANCER
     Dosage: LAST DOSE:21APR10,NO OF INF:2.
     Route: 042
     Dates: start: 20100414, end: 20100421
  2. CARBOPLATIN [Suspect]
     Indication: NON-SMALL CELL LUNG CANCER
     Route: 042
     Dates: start: 20100414, end: 20100414
  3. GEMCITABINE HCL [Suspect]
     Indication: NON-SMALL CELL LUNG CANCER
     Dosage: LAST INF:21APR10,NO OF INF:2.
     Route: 042
     Dates: start: 20100414, end: 20100421
  4. COUMADIN [Concomitant]
     Dates: start: 20081106
  5. LISINOPRIL [Concomitant]
     Indication: HYPERTENSION
     Dates: start: 20080101
  6. ALBUTEROL [Concomitant]
     Indication: CHRONIC OBSTRUCTIVE PULMONARY DISEASE
     Route: 055
     Dates: start: 20080101
  7. CARVEDILOL [Concomitant]
     Dates: start: 20080101

REACTIONS (3)
  - HYPOTENSION [None]
  - NEUTROPENIA [None]
  - THROMBOCYTOPENIA [None]
